FAERS Safety Report 4737343-8 (Version None)
Quarter: 2005Q3

REPORT INFORMATION
  Report Type: 
  Country: None (occurrence: None)
  Receive Date: 20050805
  Receipt Date: 20050725
  Transmission Date: 20060218
  Serious: Yes (Other)
  Sender: FDA-Public Use
  Company Number: 2005106754

PATIENT
  Age: 87 Year
  Sex: Female
  Weight: 52.6173 kg

DRUGS (7)
  1. NEURONTIN [Suspect]
     Indication: ILL-DEFINED DISORDER
     Dosage: 300 MG (300 MG, 1 IN 1 D)
     Dates: start: 20050719, end: 20050720
  2. LASIX [Concomitant]
  3. PROCARDIA XL [Concomitant]
  4. SYNTHROID [Concomitant]
  5. DIOVAN HCT [Concomitant]
  6. NEXIUM [Concomitant]
  7. TRICOR [Concomitant]

REACTIONS (4)
  - CONCUSSION [None]
  - FALL [None]
  - LOSS OF CONSCIOUSNESS [None]
  - SYNCOPE [None]
